FAERS Safety Report 5700806-2 (Version None)
Quarter: 2008Q2

REPORT INFORMATION
  Report Type: 
  Country: None (occurrence: None)
  Receive Date: 20080410
  Receipt Date: 20080402
  Transmission Date: 20081010
  Serious: Yes (Other)
  Sender: FDA-Public Use
  Company Number: KR-TEVA-169705ISR

PATIENT
  Sex: Male

DRUGS (3)
  1. CISPLATIN [Suspect]
     Indication: BONE SARCOMA
  2. DOXORUBICIN HCL [Suspect]
     Indication: BONE SARCOMA
  3. METHOTREXATE [Suspect]
     Indication: BONE SARCOMA

REACTIONS (1)
  - THYROID CANCER [None]
